FAERS Safety Report 8617288-3 (Version None)
Quarter: 2012Q3

REPORT INFORMATION
  Report Type: 
  Country: None (occurrence: None)
  Receive Date: 20120823
  Receipt Date: 20120810
  Transmission Date: 20120928
  Serious: Yes (Hospitalization, Other)
  Sender: FDA-Public Use
  Company Number: GB-MYLANLABS-2012S1016577

PATIENT
  Age: 19 Year
  Sex: Female

DRUGS (7)
  1. INSULIN [Suspect]
     Route: 042
  2. ACETYLSALICYLIC ACID SRT [Suspect]
     Indication: PRODUCT USED FOR UNKNOWN INDICATION
  3. FENOFIBRATE [Suspect]
     Indication: HYPERTRIGLYCERIDAEMIA
  4. BETAMETHASONE [Suspect]
     Indication: MATERNAL THERAPY TO ENHANCE FOETAL LUNG MATURITY
  5. ATORVASTATIN [Suspect]
     Indication: HYPERTRIGLYCERIDAEMIA
  6. INSULIN [Suspect]
     Indication: DIABETES MELLITUS
     Route: 058
  7. FOLIC ACID [Suspect]
     Indication: PRODUCT USED FOR UNKNOWN INDICATION

REACTIONS (7)
  - PANCREATITIS ACUTE [None]
  - DRUG INEFFECTIVE [None]
  - GLYCOSYLATED HAEMOGLOBIN INCREASED [None]
  - MATERNAL EXPOSURE DURING PREGNANCY [None]
  - DIET NONCOMPLIANCE [None]
  - TREATMENT NONCOMPLIANCE [None]
  - HYPERTRIGLYCERIDAEMIA [None]
